FAERS Safety Report 19963592 (Version 1)
Quarter: 2021Q4

REPORT INFORMATION
  Report Type: Spontaneous
  Country: US (occurrence: US)
  Receive Date: 20211013
  Receipt Date: 20211013
  Transmission Date: 20220303
  Serious: Yes (Death, Life-Threatening, Disabling, Congenital Anomaly)
  Sender: FDA-Public Use
  Company Number: None

PATIENT
  Age: 52 Year
  Sex: Male
  Weight: 108.86 kg

DRUGS (7)
  1. HALDOL [Suspect]
     Active Substance: HALOPERIDOL
  2. VERAPAMIL HYDROCHLORIDE [Concomitant]
     Active Substance: VERAPAMIL HYDROCHLORIDE
  3. CARVEDILOL [Concomitant]
     Active Substance: CARVEDILOL
  4. BENZTROPINE [Concomitant]
     Active Substance: BENZTROPINE
  5. FUROSEMIDE [Concomitant]
     Active Substance: FUROSEMIDE
  6. TAMSULOSIN [Concomitant]
     Active Substance: TAMSULOSIN
  7. HALOPERIDOL [Suspect]
     Active Substance: HALOPERIDOL

REACTIONS (7)
  - Multiple pregnancy [None]
  - Migraine [None]
  - Blood pressure increased [None]
  - Disability [None]
  - Testicular pain [None]
  - Exposure via father [None]
  - Complication of delivery [None]
